FAERS Safety Report 15889855 (Version 1)
Quarter: 2019Q1

REPORT INFORMATION
  Report Type: Spontaneous
  Country: US (occurrence: US)
  Receive Date: 20190130
  Receipt Date: 20190130
  Transmission Date: 20190417
  Serious: Yes (Other)
  Sender: FDA-Public Use
  Company Number: US-PFIZER INC-2019035822

PATIENT
  Age: 4 Year
  Weight: 40 kg

DRUGS (1)
  1. DILANTIN [Suspect]
     Active Substance: PHENYTOIN
     Dosage: TWO DOSES OF 400 MG/KG (EACH WITH A 50 MG/KG MAINTENACE BOLUS) WITHIN A 2 HOUR PERIOD

REACTIONS (5)
  - Brain oedema [Unknown]
  - Subdural haematoma [Unknown]
  - Intracranial pressure increased [Unknown]
  - Overdose [Unknown]
  - Hypoxia [Unknown]
